FAERS Safety Report 25841661 (Version 1)
Quarter: 2025Q3

REPORT INFORMATION
  Report Type: Spontaneous
  Country: MA (occurrence: MA)
  Receive Date: 20250924
  Receipt Date: 20250924
  Transmission Date: 20251021
  Serious: Yes (Other)
  Sender: ALEXION PHARMACEUTICALS
  Company Number: MA-AstraZeneca-CH-00954426A

PATIENT
  Age: 59 Year
  Sex: Male

DRUGS (1)
  1. TAGRISSO [Suspect]
     Active Substance: OSIMERTINIB
     Dosage: 80 MILLIGRAM, QD
     Dates: start: 20240615

REACTIONS (2)
  - Hepatitis [Recovering/Resolving]
  - Hepatic neoplasm [Recovering/Resolving]

NARRATIVE: CASE EVENT DATE: 20250910
